FAERS Safety Report 4285385-1 (Version None)
Quarter: 2004Q1

REPORT INFORMATION
  Report Type: 
  Country: None (occurrence: None)
  Receive Date: 20040202
  Receipt Date: 20040126
  Transmission Date: 20041129
  Serious: Yes (Death)
  Sender: FDA-Public Use
  Company Number: 200410161GDS

PATIENT
  Age: 72 Year
  Sex: Male

DRUGS (4)
  1. ASPIRIN [Suspect]
     Indication: PROPHYLAXIS
     Dosage: 200 MG, QD, ORAL
     Route: 048
     Dates: end: 20040107
  2. SORTIS [Concomitant]
  3. AMARYL [Concomitant]
  4. ACTOS [Concomitant]

REACTIONS (3)
  - CEREBRAL HAEMORRHAGE [None]
  - COMA [None]
  - MASS [None]
